FAERS Safety Report 18458584 (Version 1)
Quarter: 2020Q4

REPORT INFORMATION
  Report Type: Spontaneous
  Country: US (occurrence: US)
  Receive Date: 20201103
  Receipt Date: 20201103
  Transmission Date: 20210114
  Serious: Yes (Other)
  Sender: FDA-Public Use
  Company Number: US-PFIZER INC-2020421575

PATIENT
  Age: 73 Year
  Sex: Female

DRUGS (5)
  1. NORPACE CR [Suspect]
     Active Substance: DISOPYRAMIDE PHOSPHATE
     Indication: HYPERTROPHIC CARDIOMYOPATHY
     Dosage: 100 MG, 3X/DAY (100MG THREE TIMES A DAY )
  2. NORPACE CR [Suspect]
     Active Substance: DISOPYRAMIDE PHOSPHATE
     Dosage: 100 MG, 2X/DAY (100MG TWICE A DAY BY MOUTH)
     Route: 048
  3. NORPACE CR [Suspect]
     Active Substance: DISOPYRAMIDE PHOSPHATE
     Dosage: 250 MG, DAILY (TAKING 100MG IN THE MORNING AND 150MG AT NIGHT)
  4. PROPRANOLOL HYDROCHLORIDE. [Concomitant]
     Active Substance: PROPRANOLOL HYDROCHLORIDE
     Indication: BLOOD PRESSURE MEASUREMENT
     Dosage: 120 MG, 2X/DAY (120MG TWICE A DAY BY MOUTH)
     Route: 048
  5. CLONIDINE. [Concomitant]
     Active Substance: CLONIDINE
     Indication: BLOOD PRESSURE MEASUREMENT
     Dosage: 0.25 MG, DAILY (0.1MG IN THE MORNING AND AT 0.15 MG AT NIGHT)

REACTIONS (8)
  - Syncope [Unknown]
  - Headache [Unknown]
  - Loss of consciousness [Unknown]
  - Essential tremor [Unknown]
  - Gait disturbance [Unknown]
  - Hypertension [Unknown]
  - Muscle spasms [Unknown]
  - Balance disorder [Unknown]

NARRATIVE: CASE EVENT DATE: 202010
